FAERS Safety Report 14889634 (Version 1)
Quarter: 2018Q2

REPORT INFORMATION
  Report Type: Spontaneous
  Country: FR (occurrence: FR)
  Receive Date: 20180514
  Receipt Date: 20180514
  Transmission Date: 20180711
  Serious: Yes (Other)
  Sender: FDA-Public Use
  Company Number: FR-AUROBINDO-AUR-APL-2018-024269

PATIENT
  Age: 40 Year
  Sex: Female
  Weight: 53 kg

DRUGS (6)
  1. PARACETAMOL [Suspect]
     Active Substance: ACETAMINOPHEN
     Indication: PAIN MANAGEMENT
     Dosage: 2000 MILLIGRAM, DAILY
     Route: 042
     Dates: start: 20180411, end: 20180413
  2. PHLOROGLUCINOL ARROW 80MG [Suspect]
     Active Substance: PHLOROGLUCINOL
     Indication: ABDOMINAL PAIN
     Dosage: 4 DOSAGE FORM, DAILY
     Route: 048
     Dates: start: 20180413, end: 20180413
  3. PHLOROGLUCINOL ARROW [Concomitant]
     Active Substance: PHLOROGLUCINOL
     Indication: ABDOMINAL PAIN
     Dosage: 160 MILLIGRAM, DAILY
     Route: 042
     Dates: start: 20180413, end: 20180413
  4. METHYLPREDNISOLONE MYLAN           /00049602/ [Suspect]
     Active Substance: METHYLPREDNISOLONE SODIUM SUCCINATE
     Indication: EOSINOPHILIC GRANULOMATOSIS WITH POLYANGIITIS
     Dosage: 500 MILLIGRAM, DAILY
     Route: 042
     Dates: start: 20180411, end: 20180413
  5. METOCLOPRAMIDE. [Suspect]
     Active Substance: METOCLOPRAMIDE
     Indication: DYSPEPSIA
     Dosage: 10 MILLIGRAM, DAILY
     Route: 048
     Dates: start: 20180412, end: 20180413
  6. SERETIDE [Concomitant]
     Active Substance: FLUTICASONE PROPIONATE\SALMETEROL XINAFOATE
     Indication: ASTHMA
     Dosage: 2 DOSAGE FORM, DAILY
     Route: 055

REACTIONS (1)
  - Hepatitis acute [Recovering/Resolving]

NARRATIVE: CASE EVENT DATE: 20180413
